FAERS Safety Report 13089449 (Version 4)
Quarter: 2019Q3

REPORT INFORMATION
  Report Type: Spontaneous
  Country: US (occurrence: US)
  Receive Date: 20170105
  Receipt Date: 20190916
  Transmission Date: 20191004
  Serious: Yes (Hospitalization, Other)
  Sender: FDA-Public Use
  Company Number: US-PFIZER INC-2016605604

PATIENT
  Age: 74 Year
  Sex: Male

DRUGS (5)
  1. INSPRA [Suspect]
     Active Substance: EPLERENONE
     Indication: CARDIAC DISORDER
  2. INSPRA [Suspect]
     Active Substance: EPLERENONE
     Indication: CARDIAC FAILURE CONGESTIVE
     Dosage: 50 MG, 2X/DAY
     Dates: start: 2010, end: 201601
  3. INSPRA [Suspect]
     Active Substance: EPLERENONE
     Indication: BLOOD PRESSURE INCREASED
     Dosage: 50 MG, 2X/DAY
     Route: 048
     Dates: end: 200512
  4. ASPIRIN. [Concomitant]
     Active Substance: ASPIRIN
     Dosage: 81 MG, UNK (ONNE IN THE AM)
  5. COREG [Suspect]
     Active Substance: CARVEDILOL
     Indication: CARDIAC FAILURE CONGESTIVE
     Dosage: 6.25 MG, 2X/DAY
     Route: 048
     Dates: start: 200809

REACTIONS (6)
  - Dizziness [Recovered/Resolved]
  - Abdominal discomfort [Unknown]
  - Cardiac failure congestive [Not Recovered/Not Resolved]
  - Product use issue [Unknown]
  - Headache [Unknown]
  - Off label use [Unknown]

NARRATIVE: CASE EVENT DATE: 2005
